FAERS Safety Report 8594195-6 (Version None)
Quarter: 2012Q3

REPORT INFORMATION
  Report Type: 
  Country: None (occurrence: None)
  Receive Date: 20120814
  Receipt Date: 20120807
  Transmission Date: 20120928
  Serious: Yes (Hospitalization)
  Sender: FDA-Public Use
  Company Number: PHHY2012DK024499

PATIENT
  Sex: Female

DRUGS (9)
  1. CALCIUM [Concomitant]
     Route: 048
  2. VITAMIN D [Concomitant]
     Route: 048
  3. ALENDRONATE SODIUM [Suspect]
     Indication: OSTEOPOROSIS
     Route: 048
     Dates: start: 20070601, end: 20070901
  4. ALENDRONATE SODIUM [Suspect]
  5. PREDNISOLONE [Concomitant]
     Indication: ASTHMA
     Dosage: 25 MG, QD
     Route: 048
     Dates: start: 20030501
  6. CALCIUM [Concomitant]
     Route: 048
  7. VITAMIN D [Concomitant]
     Route: 048
  8. VITAMIN D [Concomitant]
     Indication: OSTEOPOROSIS
     Route: 048
  9. CALCIUM [Concomitant]
     Indication: OSTEOPOROSIS
     Route: 048

REACTIONS (4)
  - LUNG DISORDER [None]
  - DYSPHAGIA [None]
  - BONE DENSITY DECREASED [None]
  - MYALGIA [None]
